FAERS Safety Report 20556998 (Version 1)
Quarter: 2022Q1

REPORT INFORMATION
  Report Type: Spontaneous
  Country: CA (occurrence: CA)
  Receive Date: 20220307
  Receipt Date: 20220307
  Transmission Date: 20220424
  Serious: Yes (Hospitalization)
  Sender: FDA-Public Use
  Company Number: CA-BAXTER-2022BAX004626

PATIENT
  Age: 35 Month
  Sex: Female
  Weight: 11 kg

DRUGS (16)
  1. MESNA [Suspect]
     Active Substance: MESNA
     Indication: Brain neoplasm
     Dosage: DOSAGE FORM: NOT SPECIFIED
     Route: 065
  2. CYCLOPHOSPHAMIDE [Suspect]
     Active Substance: CYCLOPHOSPHAMIDE
     Indication: Brain neoplasm
     Dosage: DOSAGE FORM: TABLETS
     Route: 065
  3. CYCLOPHOSPHAMIDE [Suspect]
     Active Substance: CYCLOPHOSPHAMIDE
     Indication: Brain neoplasm
     Dosage: DOSAGE FORM: NOT SPECIFIED
     Route: 065
  4. ETOPOSIDE [Suspect]
     Active Substance: ETOPOSIDE
     Indication: Brain neoplasm
     Dosage: DOSAGE FORM: NOT SPECIFIED
     Route: 065
  5. ETOPOSIDE [Suspect]
     Active Substance: ETOPOSIDE
     Dosage: DOSAGE FORM: NOT SPECIFIED
     Route: 065
  6. CISPLATIN [Suspect]
     Active Substance: CISPLATIN
     Indication: Brain neoplasm
     Dosage: DOSAGE FORM: SOLUTION INTRAVENOUS
     Route: 065
  7. CISPLATIN [Suspect]
     Active Substance: CISPLATIN
     Dosage: DOSAGE FORM: SOLUTION INTRAVENOUS
     Route: 065
  8. VINCRISTINE SULFATE [Suspect]
     Active Substance: VINCRISTINE SULFATE
     Indication: Brain neoplasm
     Dosage: DOSAGE FORM: NOT SPECIFIED
     Route: 065
  9. VINCRISTINE SULFATE [Suspect]
     Active Substance: VINCRISTINE SULFATE
     Dosage: DOSAGE FORM: NOT SPECIFIED
     Route: 065
  10. DIPHENHYDRAMINE [Concomitant]
     Active Substance: DIPHENHYDRAMINE
     Indication: Product used for unknown indication
     Dosage: DOSAGE FORM: NOT SPECIFIED
     Route: 065
  11. EMEND [Concomitant]
     Active Substance: APREPITANT
     Indication: Product used for unknown indication
     Dosage: DOSAGE FORM: CAPSULES
     Route: 065
  12. FILGRASTIM [Concomitant]
     Active Substance: FILGRASTIM
     Indication: Product used for unknown indication
     Dosage: DOSAGE FORM: NOT REPORTED
     Route: 065
  13. LORAZEPAM [Concomitant]
     Active Substance: LORAZEPAM
     Indication: Product used for unknown indication
     Dosage: DOSAGE FORM: NOT SPECIFIED
     Route: 065
  14. METOCLOPRAMIDE [Concomitant]
     Active Substance: METOCLOPRAMIDE
     Indication: Product used for unknown indication
     Dosage: DOSAGE FORM: NOT SPECIFIED
     Route: 065
  15. ONDANSETRON [Concomitant]
     Active Substance: ONDANSETRON
     Indication: Product used for unknown indication
     Dosage: DOSAGE FORM: NOT SPECIFIED
     Route: 065
  16. FOSAPREPITANT DIMEGLUMINE [Concomitant]
     Active Substance: FOSAPREPITANT DIMEGLUMINE
     Indication: Product used for unknown indication
     Dosage: DOSAGE FORM: NOT REPORTED
     Route: 065

REACTIONS (3)
  - Product use in unapproved indication [Unknown]
  - Febrile neutropenia [Recovered/Resolved]
  - Febrile neutropenia [Unknown]
